FAERS Safety Report 15373865 (Version 2)
Quarter: 2018Q4

REPORT INFORMATION
  Report Type: Spontaneous
  Country: FR (occurrence: FR)
  Receive Date: 20180912
  Receipt Date: 20181210
  Transmission Date: 20190204
  Serious: Yes (Hospitalization, Other)
  Sender: FDA-Public Use
  Company Number: US-ALKEM LABORATORIES LIMITED-FR-ALKEM-2018-07080

PATIENT
  Age: 67 Year
  Sex: Female

DRUGS (1)
  1. GABAPENTIN. [Suspect]
     Active Substance: GABAPENTIN
     Indication: AFFECTIVE DISORDER
     Dosage: 7200+ MG/DAY
     Route: 065

REACTIONS (13)
  - Dependence [Unknown]
  - Exophthalmos [Unknown]
  - Pallor [Unknown]
  - Intentional product misuse [Unknown]
  - Withdrawal syndrome [Recovered/Resolved]
  - Agitation [Unknown]
  - Overdose [Unknown]
  - Drug abuse [Unknown]
  - Hyperhidrosis [Recovered/Resolved]
  - Nervousness [Recovered/Resolved]
  - Anxiety [Recovered/Resolved]
  - Tremor [Recovered/Resolved]
  - Hyperhidrosis [Unknown]
